FAERS Safety Report 24101703 (Version 2)
Quarter: 2024Q3

REPORT INFORMATION
  Report Type: Spontaneous
  Country: US (occurrence: US)
  Receive Date: 20240717
  Receipt Date: 20240717
  Transmission Date: 20241017
  Serious: Yes (Hospitalization)
  Sender: ROCHE
  Company Number: US-ROCHE-10000024996

PATIENT
  Sex: Male

DRUGS (6)
  1. ERIVEDGE [Suspect]
     Active Substance: VISMODEGIB
     Indication: Basal cell carcinoma
     Route: 048
     Dates: start: 202309, end: 202407
  2. ALBUTEROL [Concomitant]
     Active Substance: ALBUTEROL
     Dosage: 5 MG/ML
  3. ATORVASTATIN [Concomitant]
     Active Substance: ATORVASTATIN
  4. METOPROLOL [Concomitant]
     Active Substance: METOPROLOL
  5. OMEPRAZOLE [Concomitant]
     Active Substance: OMEPRAZOLE
  6. PAROXETINE [Concomitant]
     Active Substance: PAROXETINE

REACTIONS (4)
  - Pneumonia [Not Recovered/Not Resolved]
  - Alopecia [Not Recovered/Not Resolved]
  - Diarrhoea [Not Recovered/Not Resolved]
  - Pain [Not Recovered/Not Resolved]
